FAERS Safety Report 24138988 (Version 2)
Quarter: 2025Q1

REPORT INFORMATION
  Report Type: Report from Study
  Country: US (occurrence: US)
  Receive Date: 20240726
  Receipt Date: 20250121
  Transmission Date: 20250409
  Serious: Yes (Hospitalization, Other)
  Sender: ABBVIE
  Company Number: US-ABBVIE-5850602

PATIENT
  Age: 72 Year
  Sex: Male

DRUGS (3)
  1. RINVOQ [Suspect]
     Active Substance: UPADACITINIB
     Indication: Rheumatoid arthritis
     Dosage: FORM STRENGTH - 15MG?ER
     Route: 048
     Dates: start: 202312, end: 20240410
  2. RINVOQ [Suspect]
     Active Substance: UPADACITINIB
     Indication: Rheumatoid arthritis
     Dosage: LAST ADMIN DATE 2024?FORM STRENGTH - 15MG?ER
     Route: 048
     Dates: start: 20240501
  3. RINVOQ [Suspect]
     Active Substance: UPADACITINIB
     Indication: Rheumatoid arthritis
     Dosage: FORM STRENGTH 15MG
     Route: 048
     Dates: start: 202410

REACTIONS (6)
  - Spinal column injury [Unknown]
  - Osteoporosis [Unknown]
  - Fall [Unknown]
  - Spinal operation [Unknown]
  - Joint swelling [Unknown]
  - Arthralgia [Unknown]

NARRATIVE: CASE EVENT DATE: 20240412
